FAERS Safety Report 7901929-X (Version None)
Quarter: 2011Q4

REPORT INFORMATION
  Report Type: 
  Country: None (occurrence: None)
  Receive Date: 20111107
  Receipt Date: 20111107
  Transmission Date: 20120403
  Serious: No
  Sender: FDA-Public Use
  Company Number: None

PATIENT
  Sex: Male
  Weight: 108 kg

DRUGS (4)
  1. BEVACIZUMAB (RHUMAB VEGF) [Suspect]
     Dosage: 520 MG
     Dates: end: 20111011
  2. ELOXATIN [Suspect]
     Dosage: 0 MG
     Dates: end: 20110830
  3. LEUCOVORIN CALCIUM [Suspect]
     Dosage: 870 MG
     Dates: end: 20111011
  4. FLUOROURACIL [Suspect]
     Dosage: 6100 MG
     Dates: end: 20111011

REACTIONS (1)
  - PULMONARY EMBOLISM [None]
